FAERS Safety Report 10142162 (Version 1)
Quarter: 2014Q2

REPORT INFORMATION
  Report Type: Spontaneous
  Country: NL (occurrence: NL)
  Receive Date: 20140429
  Receipt Date: 20140429
  Transmission Date: 20141212
  Serious: Yes (Hospitalization, Other)
  Sender: FDA-Public Use
  Company Number: NL-AMGEN-NLDSP2014030555

PATIENT
  Age: 52 Year
  Sex: Male

DRUGS (2)
  1. ENBREL [Suspect]
     Indication: RHEUMATOID ARTHRITIS
     Dosage: 1 ML, WEEKLY
     Route: 065
     Dates: start: 201307, end: 20140301
  2. METHOTREXAT                        /00113801/ [Concomitant]
     Dosage: 25 MG, WEEKLY

REACTIONS (1)
  - Lung neoplasm malignant [Unknown]
